FAERS Safety Report 11358675 (Version 1)
Quarter: 2015Q3

REPORT INFORMATION
  Report Type: Spontaneous
  Country: US (occurrence: US)
  Receive Date: 20150803
  Receipt Date: 20150803
  Transmission Date: 20151125
  Serious: No
  Sender: FDA-Public Use
  Company Number: US-ELI_LILLY_AND_COMPANY-US200904000808

PATIENT
  Age: 30 Year
  Sex: Male
  Weight: 126.98 kg

DRUGS (1)
  1. ZYPREXA ZYDIS [Suspect]
     Active Substance: OLANZAPINE
     Indication: AFFECTIVE DISORDER
     Dosage: 20 MG, UNK
     Dates: start: 20090214, end: 200902

REACTIONS (1)
  - Fear of weight gain [Unknown]
